FAERS Safety Report 24890380 (Version 2)
Quarter: 2025Q1

REPORT INFORMATION
  Report Type: Spontaneous
  Country: RU (occurrence: RU)
  Receive Date: 20250127
  Receipt Date: 20250210
  Transmission Date: 20250409
  Serious: Yes (Other)
  Sender: BAYER HEALTHCARE PHARMACEUTICALS INC.
  Company Number: RU-BAYER-2025A004736

PATIENT
  Age: 60 Year
  Sex: Female

DRUGS (2)
  1. ANGELIQ [Suspect]
     Active Substance: DROSPIRENONE\ESTRADIOL
     Route: 048
     Dates: start: 2019, end: 202407
  2. ANGELIQ [Suspect]
     Active Substance: DROSPIRENONE\ESTRADIOL
     Route: 048
     Dates: start: 202411

REACTIONS (5)
  - Uterine polyp [Recovered/Resolved]
  - Menopausal symptoms [Recovered/Resolved]
  - Sleep disorder [Recovering/Resolving]
  - Menopausal depression [Recovering/Resolving]
  - Product use complaint [None]

NARRATIVE: CASE EVENT DATE: 20250101
